FAERS Safety Report 7529511-7 (Version None)
Quarter: 2011Q2

REPORT INFORMATION
  Report Type: 
  Country: None (occurrence: None)
  Receive Date: 20110607
  Receipt Date: 20050823
  Transmission Date: 20111010
  Serious: Yes (Death, Hospitalization, Other)
  Sender: FDA-Public Use
  Company Number: PHNR2005AU01256

PATIENT
  Sex: Female

DRUGS (1)
  1. CLOZARIL [Suspect]
     Dosage: 0 - 400 MG/DAY
     Dates: start: 20030720

REACTIONS (5)
  - HAEMORRHAGE [None]
  - HYPOVOLAEMIC SHOCK [None]
  - DEHYDRATION [None]
  - ANAEMIA [None]
  - GENERAL PHYSICAL CONDITION ABNORMAL [None]
